FAERS Safety Report 14963952 (Version 2)
Quarter: 2018Q2

REPORT INFORMATION
  Report Type: Report from Study
  Country: US (occurrence: US)
  Receive Date: 20180601
  Receipt Date: 20180608
  Transmission Date: 20180711
  Serious: Yes (Hospitalization)
  Sender: FDA-Public Use
  Company Number: US-PFIZER INC-2018215190

PATIENT
  Age: 69 Year
  Sex: Male
  Weight: 62.95 kg

DRUGS (6)
  1. GEMCITABINE HYDROCHLORIDE. [Suspect]
     Active Substance: GEMCITABINE HYDROCHLORIDE
     Indication: ADENOCARCINOMA PANCREAS
     Dosage: UNK, CYCLIC (DAYS 1, 8, 15)
     Route: 042
     Dates: start: 20180510
  2. HYDROXYCHLOROQUINE [Suspect]
     Active Substance: HYDROXYCHLOROQUINE
     Dosage: UNK UNK, DAILY
     Route: 048
     Dates: start: 20180508, end: 20180521
  3. AVELUMAB [Suspect]
     Active Substance: AVELUMAB
     Dosage: UNK, CYCLIC (D1, 15)
     Route: 042
     Dates: start: 20180510
  4. ABRAXANE [Suspect]
     Active Substance: PACLITAXEL
     Indication: ADENOCARCINOMA PANCREAS
     Dosage: UNK, CYCLIC (DAYS 1, 8, 15)
     Route: 042
     Dates: start: 20180517
  5. IBUPROFEN. [Concomitant]
     Active Substance: IBUPROFEN
     Dosage: UNK
     Dates: start: 20180520
  6. ELIQUIS [Concomitant]
     Active Substance: APIXABAN
     Dosage: UNK

REACTIONS (1)
  - Haematochezia [Recovered/Resolved]

NARRATIVE: CASE EVENT DATE: 20180521
